FAERS Safety Report 25040842 (Version 1)
Quarter: 2025Q1

REPORT INFORMATION
  Report Type: Report from Study
  Country: TW (occurrence: TW)
  Receive Date: 20250305
  Receipt Date: 20250305
  Transmission Date: 20250409
  Serious: Yes (Death)
  Sender: AMGEN
  Company Number: TW-AMGEN-TWNNI2025043114

PATIENT
  Age: 70 Year
  Sex: Male

DRUGS (1)
  1. TARLATAMAB [Suspect]
     Active Substance: TARLATAMAB
     Indication: Small cell lung cancer extensive stage
     Route: 065
     Dates: start: 20240906, end: 20250226

REACTIONS (1)
  - Death [Fatal]
